FAERS Safety Report 6309414-6 (Version None)
Quarter: 2009Q3

REPORT INFORMATION
  Report Type: 
  Country: None (occurrence: None)
  Receive Date: 20090814
  Receipt Date: 20090803
  Transmission Date: 20100115
  Serious: Yes (Hospitalization, Other)
  Sender: FDA-Public Use
  Company Number: NL-ROCHE-647776

PATIENT
  Sex: Male
  Weight: 74 kg

DRUGS (6)
  1. MYCOPHENOLATE MOFETIL [Suspect]
     Route: 048
     Dates: start: 20081028
  2. CP-690550 [Suspect]
     Indication: KIDNEY TRANSPLANT REJECTION
     Route: 065
     Dates: start: 20081029, end: 20090119
  3. VALCYTE [Suspect]
     Indication: DRUG USE FOR UNKNOWN INDICATION
     Route: 065
     Dates: start: 20081029, end: 20090106
  4. VALCYTE [Suspect]
     Route: 065
     Dates: start: 20090203
  5. PREDNISONE [Suspect]
     Indication: IMMUNOSUPPRESSION
     Route: 048
     Dates: start: 20081028, end: 20090127
  6. TACROLIMUS [Suspect]
     Indication: IMMUNOSUPPRESSION
     Route: 048
     Dates: start: 20090119

REACTIONS (3)
  - CYTOMEGALOVIRUS INFECTION [None]
  - MYOPATHY [None]
  - TRANSPLANT REJECTION [None]
